FAERS Safety Report 20023478 (Version 30)
Quarter: 2022Q4

REPORT INFORMATION
  Report Type: Report from Study
  Country: CH (occurrence: None)
  Receive Date: 20211102
  Receipt Date: 20221130
  Transmission Date: 20230113
  Serious: Yes (Death, Life-Threatening, Hospitalization, Other)
  Sender: FDA-Public Use
  Company Number: CH-Eisai Medical Research-EC-2021-102388

PATIENT
  Age: 76 Year
  Sex: Male
  Weight: 83 kg

DRUGS (12)
  1. LENVATINIB [Suspect]
     Active Substance: LENVATINIB
     Indication: Hepatocellular carcinoma
     Route: 048
     Dates: start: 20211012, end: 20211025
  2. LENVATINIB [Suspect]
     Active Substance: LENVATINIB
     Dosage: STARTING DOSE AT 12 MG (FLUCTUATED DOSAGE)
     Route: 048
     Dates: start: 20211030, end: 20211104
  3. PEMBROLIZUMAB [Suspect]
     Active Substance: PEMBROLIZUMAB
     Indication: Hepatocellular carcinoma
     Dosage: 25 MG QUAVONLIMAB / 400 MG PEMBROLIZUMAB
     Route: 042
     Dates: start: 20211012, end: 20211012
  4. PEMBROLIZUMAB [Suspect]
     Active Substance: PEMBROLIZUMAB
     Indication: Hepatocellular carcinoma
     Route: 042
     Dates: start: 20211207, end: 20211207
  5. TAMSULOSIN [Concomitant]
     Active Substance: TAMSULOSIN
     Dates: start: 2011, end: 20211026
  6. LOSARTAN [Concomitant]
     Active Substance: LOSARTAN
     Dates: start: 2016, end: 20211025
  7. MAGNESIUM ASPARTATE HYDROCHLORIDE [Concomitant]
     Active Substance: MAGNESIUM ASPARTATE HYDROCHLORIDE
     Dates: start: 20210917, end: 20211024
  8. VITA-MERFEN [Concomitant]
     Dates: start: 20211018, end: 20220118
  9. CETIRIZINE HYDROCHLORIDE [Concomitant]
     Active Substance: CETIRIZINE HYDROCHLORIDE
     Dates: start: 20211018, end: 20220118
  10. DEXPANTHENOL [Concomitant]
     Active Substance: DEXPANTHENOL
     Dates: start: 20211018, end: 20220118
  11. UREA [Concomitant]
     Active Substance: UREA
     Dates: start: 20211018, end: 20220118
  12. QUAVONLIMAB [Suspect]
     Active Substance: QUAVONLIMAB

REACTIONS (7)
  - Bradycardia [Recovered/Resolved]
  - Diarrhoea [Recovered/Resolved]
  - Immune thrombocytopenia [Recovered/Resolved]
  - Immune-mediated encephalitis [Recovered/Resolved]
  - Arthritis infective [Recovered/Resolved]
  - Rotavirus infection [Recovered/Resolved]
  - COVID-19 pneumonia [Fatal]

NARRATIVE: CASE EVENT DATE: 20211023
